FAERS Safety Report 24243276 (Version 1)
Quarter: 2024Q3

REPORT INFORMATION
  Report Type: Spontaneous
  Country: US (occurrence: US)
  Receive Date: 20240823
  Receipt Date: 20240823
  Transmission Date: 20241016
  Serious: Yes (Other)
  Sender: LABORATOIRES SERB
  Company Number: US-SERB S.A.S.-2160794

PATIENT
  Age: 41 Year
  Sex: Male

DRUGS (3)
  1. VORAXAZE [Suspect]
     Active Substance: GLUCARPIDASE
     Indication: Toxicity to various agents
  2. METHOTREXATE [Concomitant]
     Active Substance: METHOTREXATE
     Route: 042
  3. LEUCOVORIN [Concomitant]
     Active Substance: LEUCOVORIN\LEUCOVORIN CALCIUM
     Route: 042

REACTIONS (2)
  - Drug level increased [Recovered/Resolved]
  - Condition aggravated [Recovered/Resolved]
